FAERS Safety Report 18191896 (Version 3)
Quarter: 2020Q3

REPORT INFORMATION
  Report Type: Spontaneous
  Country: US (occurrence: US)
  Receive Date: 20200825
  Receipt Date: 20200925
  Transmission Date: 20201103
  Serious: Yes (Life-Threatening, Hospitalization)
  Sender: FDA-Public Use
  Company Number: US-HIKMA PHARMACEUTICALS USA INC.-US-H14001-20-03897

PATIENT
  Age: 4 Year
  Sex: Male
  Weight: 15.6 kg

DRUGS (4)
  1. ETOPOSIDE. [Suspect]
     Active Substance: ETOPOSIDE
     Indication: NEUROBLASTOMA
     Dosage: 136 MG DILUTED IN 340 ML SODIUM CHLORIDE 0.9% ADMINISTERED AT 170ML/HR
     Route: 042
     Dates: start: 20200724, end: 20200727
  2. CRIZOTINIB [Suspect]
     Active Substance: CRIZOTINIB
     Indication: NEUROBLASTOMA
     Route: 048
     Dates: start: 20200724, end: 20200729
  3. CISPLATIN. [Suspect]
     Active Substance: CISPLATIN
     Indication: NEUROBLASTOMA
     Dosage: 40.8 MG DILUTED IN 300 ML SODIUM CHLORIDE 0.9% ADMINISTERED AT 77.5ML/HR
     Route: 042
     Dates: start: 20200724, end: 20200727
  4. NYSTATIN/TRIAMCINOLONE ACETONIDE [Concomitant]
     Active Substance: NYSTATIN\TRIAMCINOLONE ACETONIDE
     Indication: PRODUCT USED FOR UNKNOWN INDICATION
     Route: 065

REACTIONS (9)
  - Vomiting [Recovering/Resolving]
  - Hypotension [Recovered/Resolved]
  - Dehydration [Recovered/Resolved]
  - Hypochloraemia [Recovered/Resolved]
  - Blood urea increased [Recovered/Resolved]
  - Hyponatraemia [Recovered/Resolved]
  - Mental status changes [Recovering/Resolving]
  - Hypokalaemia [Recovered/Resolved]
  - Eye movement disorder [Recovering/Resolving]

NARRATIVE: CASE EVENT DATE: 20200729
